FAERS Safety Report 9643346 (Version 1)
Quarter: 2013Q4

REPORT INFORMATION
  Report Type: Spontaneous
  Country: US (occurrence: US)
  Receive Date: 20131024
  Receipt Date: 20131024
  Transmission Date: 20140711
  Serious: No
  Sender: FDA-Public Use
  Company Number: US-TEVA-440037USA

PATIENT
  Age: 39 Year
  Sex: Female
  Weight: 93 kg

DRUGS (1)
  1. PARAGARD 380A [Suspect]
     Indication: CONTRACEPTION
     Route: 015
     Dates: start: 20091202

REACTIONS (3)
  - Device expulsion [Unknown]
  - Fungal infection [Unknown]
  - Vaginal discharge [Unknown]
